FAERS Safety Report 4666066-9 (Version None)
Quarter: 2005Q2

REPORT INFORMATION
  Report Type: 
  Country: None (occurrence: None)
  Receive Date: 20050519
  Receipt Date: 20050512
  Transmission Date: 20051028
  Serious: Yes (Other)
  Sender: FDA-Public Use
  Company Number: PHEH2005US05437

PATIENT
  Age: 55 Year
  Sex: Female

DRUGS (3)
  1. LAMISIL [Suspect]
     Indication: NAIL TINEA
     Dosage: 250 MG, QD
     Route: 048
     Dates: start: 20050101, end: 20050401
  2. NORTRIPTYLINE HCL [Concomitant]
     Dosage: 50 MG, QD
     Route: 048
     Dates: end: 20040401
  3. NORTRIPTYLINE HCL [Concomitant]
     Dosage: 50 MG, QOD
     Route: 048
     Dates: start: 20050401, end: 20050501

REACTIONS (3)
  - DRUG INTERACTION [None]
  - HEART RATE IRREGULAR [None]
  - TREATMENT NONCOMPLIANCE [None]
